FAERS Safety Report 7803742-0 (Version None)
Quarter: 2011Q4

REPORT INFORMATION
  Report Type: 
  Country: None (occurrence: None)
  Receive Date: 20111010
  Receipt Date: 20111004
  Transmission Date: 20120403
  Serious: No
  Sender: FDA-Public Use
  Company Number: US-PFIZER INC-2011237070

PATIENT
  Sex: Female
  Weight: 122 kg

DRUGS (3)
  1. CYMBALTA [Concomitant]
     Indication: ARTHRALGIA
     Dosage: UNK
  2. LISINOPRIL [Concomitant]
     Indication: HYPERTENSION
     Dosage: UNK
  3. SUTENT [Suspect]
     Indication: RENAL CELL CARCINOMA
     Dosage: 50 MG, 1X/DAY
     Route: 048
     Dates: start: 20080801

REACTIONS (2)
  - GASTROOESOPHAGEAL REFLUX DISEASE [None]
  - PLANTAR FASCIITIS [None]
